FAERS Safety Report 16441304 (Version 4)
Quarter: 2019Q3

REPORT INFORMATION
  Report Type: Spontaneous
  Country: US (occurrence: US)
  Receive Date: 20190617
  Receipt Date: 20190723
  Transmission Date: 20191004
  Serious: Yes (Hospitalization, Other)
  Sender: FDA-Public Use
  Company Number: US-PFIZER INC-2019249532

PATIENT
  Age: 63 Year
  Sex: Male

DRUGS (1)
  1. SOLU-MEDROL [Suspect]
     Active Substance: METHYLPREDNISOLONE SODIUM SUCCINATE
     Indication: ERYTHEMA MULTIFORME
     Dosage: 60 MG, TWICE A DAY (EVERY 12H - 2 DOSES ONLY)
     Route: 042
     Dates: start: 20190404, end: 20190405

REACTIONS (6)
  - Thrombocytopenia [Recovered/Resolved]
  - Pigmentation disorder [Unknown]
  - Rash [Unknown]
  - Intestinal haemorrhage [Recovered/Resolved]
  - Melaena [Recovered/Resolved]
  - Arthralgia [Recovered/Resolved]

NARRATIVE: CASE EVENT DATE: 20190405
